FAERS Safety Report 8084088-5 (Version None)
Quarter: 2012Q1

REPORT INFORMATION
  Report Type: 
  Country: None (occurrence: None)
  Receive Date: 20120128
  Receipt Date: 20110202
  Transmission Date: 20120608
  Serious: Yes (Hospitalization, Other)
  Sender: FDA-Public Use
  Company Number: US-ABBOTT-11P-163-0701510-00

PATIENT
  Sex: Female
  Weight: 81.72 kg

DRUGS (3)
  1. HUMIRA [Suspect]
     Indication: RHEUMATOID ARTHRITIS
     Dates: start: 20080101, end: 20110113
  2. SYNTHROID [Concomitant]
     Indication: HYPOTHYROIDISM
  3. CLINDAMYCIN [Suspect]
     Indication: CELLULITIS
     Dates: start: 20110101, end: 20110124

REACTIONS (8)
  - MYCOBACTERIAL INFECTION [None]
  - THINKING ABNORMAL [None]
  - INFECTION [None]
  - NAUSEA [None]
  - ARTHRALGIA [None]
  - CELLULITIS [None]
  - PAIN [None]
  - CUTANEOUS TUBERCULOSIS [None]
